FAERS Safety Report 9324221 (Version 2)
Quarter: 2013Q3

REPORT INFORMATION
  Report Type: Spontaneous
  Country: US (occurrence: US)
  Receive Date: 20130603
  Receipt Date: 20130807
  Transmission Date: 20140515
  Serious: No
  Sender: FDA-Public Use
  Company Number: US-009507513-1305USA014665

PATIENT
  Age: 55 Year
  Sex: Female
  Weight: 77.98 kg

DRUGS (3)
  1. CLARITIN REDITABS [Suspect]
     Indication: HYPERSENSITIVITY
     Dosage: 10 MG, ONCE
     Route: 048
     Dates: start: 20130510, end: 20130511
  2. CLARITIN REDITABS [Suspect]
     Indication: MEDICAL OBSERVATION
  3. COZAAR [Concomitant]
     Indication: HYPERTENSION
     Dosage: UNK, UNKNOWN

REACTIONS (2)
  - Drug effect decreased [Unknown]
  - Product label issue [Unknown]
